FAERS Safety Report 7898165-2 (Version None)
Quarter: 2011Q4

REPORT INFORMATION
  Report Type: 
  Country: None (occurrence: None)
  Receive Date: 20111107
  Receipt Date: 20111030
  Transmission Date: 20120403
  Serious: Yes (Other)
  Sender: FDA-Public Use
  Company Number: RU-MERCK-1110USA04560

PATIENT
  Age: 54 Year
  Sex: Female
  Weight: 73 kg

DRUGS (8)
  1. TRICOR [Concomitant]
     Indication: HYPERCHOLESTEROLAEMIA
     Route: 065
     Dates: start: 20110101
  2. PREDUCTAL MR [Concomitant]
     Indication: MYOCARDIAL ISCHAEMIA
     Route: 065
     Dates: start: 20070101
  3. ATORVASTATIN CALCIUM [Concomitant]
     Indication: MYOCARDIAL ISCHAEMIA
     Route: 065
     Dates: start: 20110101
  4. CONCOR [Concomitant]
     Indication: HYPERTENSION
     Route: 065
     Dates: start: 20070101
  5. RASILEZ [Concomitant]
     Indication: HYPERTENSION
     Route: 065
     Dates: start: 20100101
  6. CONCOR [Concomitant]
     Indication: MYOCARDIAL ISCHAEMIA
     Route: 065
     Dates: start: 20070101
  7. JANUVIA [Suspect]
     Indication: TYPE 2 DIABETES MELLITUS
     Route: 048
     Dates: start: 20100301
  8. ASPIRIN [Concomitant]
     Indication: MYOCARDIAL ISCHAEMIA
     Route: 065
     Dates: start: 20070101

REACTIONS (2)
  - ACUTE MYOCARDIAL INFARCTION [None]
  - ANTIBODY TEST POSITIVE [None]
